FAERS Safety Report 18073507 (Version 2)
Quarter: 2021Q2

REPORT INFORMATION
  Report Type: Spontaneous
  Country: NL (occurrence: NL)
  Receive Date: 20200727
  Receipt Date: 20210629
  Transmission Date: 20210717
  Serious: Yes (Life-Threatening, Hospitalization)
  Sender: FDA-Public Use
  Company Number: NL-TEVA-2020-NL-1805884

PATIENT
  Age: 35 Year
  Sex: Male

DRUGS (11)
  1. CHLOROQUINE. [Suspect]
     Active Substance: CHLOROQUINE
     Indication: COVID-19
     Dosage: LOADING DOSE
     Route: 048
     Dates: start: 202003, end: 202003
  2. CHLOROQUINE. [Suspect]
     Active Substance: CHLOROQUINE
     Dosage: 600 MILLIGRAM DAILY;
     Route: 048
     Dates: start: 202003, end: 202003
  3. EVEROLIMUS. [Interacting]
     Active Substance: EVEROLIMUS
     Dosage: 4 MILLIGRAM DAILY; DOSE REDUCED DUE TO EXPECTED INTERACTION WITH LOPINAVIR/RITONAVIR
     Route: 065
     Dates: start: 202003, end: 202003
  4. PREDNISOLONE. [Suspect]
     Active Substance: PREDNISOLONE
     Indication: IMMUNOSUPPRESSANT DRUG THERAPY
     Dosage: 7.5 MILLIGRAM DAILY;
     Route: 065
  5. LOPINAVIR/RITONAVIR [Interacting]
     Active Substance: LOPINAVIR\RITONAVIR
     Indication: COVID-19
  6. TRAMADOL. [Concomitant]
     Active Substance: TRAMADOL
     Indication: MYALGIA
     Route: 065
     Dates: start: 202002
  7. EVEROLIMUS. [Suspect]
     Active Substance: EVEROLIMUS
     Indication: IMMUNOSUPPRESSANT DRUG THERAPY
     Dosage: 6 MILLIGRAM DAILY; TARGETED TROUGH CONCENTRATIONS BETWEEN 3?8 MICROG/L
     Route: 065
     Dates: end: 202003
  8. PARACETAMOL [Suspect]
     Active Substance: ACETAMINOPHEN
     Indication: PYREXIA
     Route: 065
     Dates: start: 202002
  9. CEFUROXIME. [Suspect]
     Active Substance: CEFUROXIME
     Indication: COVID-19
     Route: 042
     Dates: start: 202003, end: 202003
  10. LOPINAVIR/RITONAVIR [Interacting]
     Active Substance: LOPINAVIR\RITONAVIR
     Indication: ANTIVIRAL TREATMENT
     Dosage: 2 DOSAGE FORMS DAILY; LOPINAVIR: 400 MG; RITONAVIR: 100 MG
     Route: 065
     Dates: start: 202003, end: 202003
  11. CEFTRIAXONE. [Suspect]
     Active Substance: CEFTRIAXONE
     Indication: COVID-19
     Route: 042
     Dates: start: 202003

REACTIONS (15)
  - Respiratory failure [Recovered/Resolved]
  - Rhabdomyolysis [Recovered/Resolved]
  - Renal failure [Recovering/Resolving]
  - Interstitial lung disease [Recovered/Resolved]
  - Renal impairment [Recovering/Resolving]
  - Acute kidney injury [Recovering/Resolving]
  - Respiratory alkalosis [Recovered/Resolved]
  - Hypoxia [Recovered/Resolved]
  - Metabolic acidosis [Recovering/Resolving]
  - Toxicity to various agents [Recovered/Resolved]
  - Off label use [Unknown]
  - Drug interaction [Recovering/Resolving]
  - COVID-19 [Recovered/Resolved]
  - Acute pulmonary oedema [Recovered/Resolved]
  - Transaminases increased [Recovered/Resolved]

NARRATIVE: CASE EVENT DATE: 202002
